FAERS Safety Report 4951709-2 (Version None)
Quarter: 2006Q1

REPORT INFORMATION
  Report Type: 
  Country: None (occurrence: None)
  Receive Date: 20060323
  Receipt Date: 20051228
  Transmission Date: 20060701
  Serious: Yes (Hospitalization, Other)
  Sender: FDA-Public Use
  Company Number: US-GLAXOSMITHKLINE-A0587066A

PATIENT
  Age: 47 Year
  Sex: Female
  Weight: 103.6 kg

DRUGS (8)
  1. LAMICTAL [Suspect]
     Indication: DEPRESSION
     Route: 048
     Dates: start: 20030101, end: 20050601
  2. SEROQUEL [Concomitant]
  3. XANAX [Concomitant]
  4. CALCITRIOL [Concomitant]
  5. PRAVACHOL [Concomitant]
  6. SYNTHROID [Concomitant]
  7. OXYCONTIN [Concomitant]
     Route: 065
  8. LORTAB [Concomitant]
     Route: 065

REACTIONS (20)
  - ACCIDENTAL OVERDOSE [None]
  - ALDOLASE INCREASED [None]
  - AREFLEXIA [None]
  - ARTHRALGIA [None]
  - BLOOD CREATINE PHOSPHOKINASE INCREASED [None]
  - C-REACTIVE PROTEIN INCREASED [None]
  - CHEST X-RAY ABNORMAL [None]
  - DEPRESSED LEVEL OF CONSCIOUSNESS [None]
  - DRUG SCREEN POSITIVE [None]
  - HYPOKALAEMIA [None]
  - HYPOMAGNESAEMIA [None]
  - HYPOTENSION [None]
  - LOSS OF CONSCIOUSNESS [None]
  - MYALGIA [None]
  - MYOSITIS [None]
  - PNEUMONIA [None]
  - POLYMYOSITIS [None]
  - RED BLOOD CELL SEDIMENTATION RATE INCREASED [None]
  - RESPIRATORY ARREST [None]
  - WHITE BLOOD CELL COUNT ABNORMAL [None]
